FAERS Safety Report 18165455 (Version 3)
Quarter: 2020Q3

REPORT INFORMATION
  Report Type: Spontaneous
  Country: US (occurrence: US)
  Receive Date: 20200818
  Receipt Date: 20200903
  Transmission Date: 20201103
  Serious: Yes (Death, Life-Threatening, Hospitalization)
  Sender: FDA-Public Use
  Company Number: US-TEVA-2020-US-1815213

PATIENT
  Age: 9 Year
  Sex: Female

DRUGS (14)
  1. MAGNESIUM [Suspect]
     Active Substance: MAGNESIUM
     Indication: CARDIAC ARREST
     Route: 042
     Dates: start: 201612, end: 201612
  2. SEVOFLURANE. [Concomitant]
     Active Substance: SEVOFLURANE
     Indication: ANAESTHESIA PROCEDURE
     Route: 065
     Dates: start: 201612, end: 201612
  3. DEXAMETHASONE. [Concomitant]
     Active Substance: DEXAMETHASONE
     Indication: PRODUCT USED FOR UNKNOWN INDICATION
     Route: 065
     Dates: start: 201612, end: 201612
  4. NALOXONE [Concomitant]
     Active Substance: NALOXONE
     Indication: PRODUCT USED FOR UNKNOWN INDICATION
     Route: 065
     Dates: start: 201612, end: 201612
  5. FENTANYL. [Concomitant]
     Active Substance: FENTANYL
     Indication: ANAESTHESIA PROCEDURE
     Route: 065
     Dates: start: 201612, end: 201612
  6. ONDANSETRON [Concomitant]
     Active Substance: ONDANSETRON
     Indication: PRODUCT USED FOR UNKNOWN INDICATION
     Route: 065
     Dates: start: 201612, end: 201612
  7. EPINEPHRINE. [Suspect]
     Active Substance: EPINEPHRINE
     Indication: CARDIAC ARREST
     Dosage: THREE DOSES
     Route: 065
     Dates: start: 201612, end: 201612
  8. AMIODARONE [Suspect]
     Active Substance: AMIODARONE
     Indication: CARDIAC ARREST
     Dosage: SINGLE BOLUS
     Route: 040
     Dates: start: 201612, end: 201612
  9. FENTANYL. [Concomitant]
     Active Substance: FENTANYL
     Indication: PAIN
  10. PROPOFOL. [Suspect]
     Active Substance: PROPOFOL
     Indication: ANAESTHESIA PROCEDURE
     Route: 040
     Dates: start: 201612, end: 201612
  11. EPINEPHRINE. [Suspect]
     Active Substance: EPINEPHRINE
     Indication: PULSE ABSENT
  12. AMIODARONE [Suspect]
     Active Substance: AMIODARONE
     Indication: HEART RATE INCREASED
  13. MAGNESIUM [Suspect]
     Active Substance: MAGNESIUM
     Indication: HEART RATE INCREASED
  14. MORPHINE [Concomitant]
     Active Substance: MORPHINE
     Indication: PAIN
     Route: 065
     Dates: start: 201612, end: 201612

REACTIONS (12)
  - Cardiac arrest [Fatal]
  - Venous haemorrhage [Fatal]
  - Brugada syndrome [Fatal]
  - Bradycardia [Fatal]
  - Pupil fixed [Not Recovered/Not Resolved]
  - Pulse absent [Fatal]
  - Puncture site haemorrhage [Fatal]
  - Disseminated intravascular coagulation [Fatal]
  - Unresponsive to stimuli [Not Recovered/Not Resolved]
  - Arterial haemorrhage [Fatal]
  - Ventricular tachycardia [Fatal]
  - Drug ineffective [Unknown]

NARRATIVE: CASE EVENT DATE: 201612
